FAERS Safety Report 10694454 (Version 2)
Quarter: 2015Q1

REPORT INFORMATION
  Report Type: Report from Study
  Country: US (occurrence: US)
  Receive Date: 20150107
  Receipt Date: 20150107
  Transmission Date: 20150721
  Serious: Yes (Hospitalization, Other)
  Sender: FDA-Public Use
  Company Number: US-AMGEN-USASP2013056654

PATIENT
  Age: 58 Year
  Sex: Male

DRUGS (1)
  1. ENBREL [Suspect]
     Active Substance: ETANERCEPT
     Indication: RHEUMATOID ARTHRITIS
     Dosage: 25 MG, 2 TIMES/WK
     Route: 065
     Dates: start: 20120313, end: 201406

REACTIONS (10)
  - Osteomyelitis [Recovered/Resolved]
  - Joint dislocation [Recovered/Resolved]
  - Disability [Not Recovered/Not Resolved]
  - Incision site infection [Not Recovered/Not Resolved]
  - Post procedural haematoma [Recovered/Resolved]
  - Osteonecrosis [Unknown]
  - Rheumatoid arthritis [Not Recovered/Not Resolved]
  - Hip arthroplasty [Recovered/Resolved]
  - Femur fracture [Recovered/Resolved]
  - Weight bearing difficulty [Recovered/Resolved]

NARRATIVE: CASE EVENT DATE: 2014
